FAERS Safety Report 14890030 (Version 3)
Quarter: 2018Q3

REPORT INFORMATION
  Report Type: Spontaneous
  Country: DE (occurrence: DE)
  Receive Date: 20180514
  Receipt Date: 20180823
  Transmission Date: 20181010
  Serious: Yes (Other)
  Sender: FDA-Public Use
  Company Number: DE-TORRENT-00008395

PATIENT
  Age: 1 Day
  Sex: Female
  Weight: 3 kg

DRUGS (6)
  1. FLUOXETIN [Suspect]
     Active Substance: FLUOXETINE HYDROCHLORIDE
     Indication: OBSESSIVE-COMPULSIVE DISORDER
     Dosage: 60 [MG/D ]
     Route: 064
     Dates: start: 20161010, end: 20170702
  2. MIRTAZAPIN [Suspect]
     Active Substance: MIRTAZAPINE
     Indication: OBSESSIVE-COMPULSIVE DISORDER
     Dosage: MATERNAL DOSE: 45 MG, UNK
     Route: 064
     Dates: start: 20161010, end: 20170602
  3. FEMIBION (NEM) [Concomitant]
     Indication: PROPHYLAXIS OF NEURAL TUBE DEFECT
     Dosage: MATERNAL DOSE: UNKNOWN
     Route: 064
  4. TRAMADOL. [Suspect]
     Active Substance: TRAMADOL
     Indication: BACK PAIN
     Dosage: IF REQUIRED, MATERNAL DOSE: UNK, PRN
     Route: 064
  5. QUETIAPINE. [Suspect]
     Active Substance: QUETIAPINE
     Indication: OBSESSIVE-COMPULSIVE DISORDER
     Dosage: 600 [MG/D],MATERNAL DOSE: 600 MG, QD
     Route: 064
     Dates: start: 20161010, end: 20170702
  6. IBUPROFEN 800 [Concomitant]
     Active Substance: IBUPROFEN
     Indication: PAIN
     Dosage: 800 [MG/D ], MATERNAL DOSE: 800 MG, QD
     Route: 064

REACTIONS (3)
  - Neonatal hypoxia [Recovered/Resolved]
  - Hypertonia neonatal [Recovered/Resolved]
  - Foetal exposure during pregnancy [Unknown]

NARRATIVE: CASE EVENT DATE: 20170702
